FAERS Safety Report 7642622-0 (Version None)
Quarter: 2011Q3

REPORT INFORMATION
  Report Type: 
  Country: None (occurrence: None)
  Receive Date: 20110728
  Receipt Date: 20110713
  Transmission Date: 20111222
  Serious: No
  Sender: FDA-Public Use
  Company Number: US-BAYER-2011-062140

PATIENT
  Sex: Male
  Weight: 83.9 kg

DRUGS (15)
  1. ALLOPURINOL [Concomitant]
  2. FINASTERIDE [Concomitant]
  3. CALCIUM ACETATE [Concomitant]
  4. VITAMIN B12 NOS [Concomitant]
  5. MIRALAX [Concomitant]
  6. PENTOXIFYLLINE [Concomitant]
  7. ALEVE (CAPLET) [Suspect]
     Indication: ARTHRITIS
     Dosage: 2 UNK, UNK
     Route: 048
     Dates: start: 20110613
  8. FISH OIL [Concomitant]
  9. PREDNISONE [Concomitant]
  10. FLOMAX [Concomitant]
  11. CRESTOR [Concomitant]
  12. DRONEDARONE HCL [Concomitant]
  13. POTASSIUM [Concomitant]
  14. BENAZEPRIL HYDROCHLORIDE [Concomitant]
  15. PREVACID [Concomitant]

REACTIONS (1)
  - CONTUSION [None]
